FAERS Safety Report 8030931-5 (Version None)
Quarter: 2012Q1

REPORT INFORMATION
  Report Type: 
  Country: None (occurrence: None)
  Receive Date: 20120105
  Receipt Date: 20111220
  Transmission Date: 20120608
  Serious: Yes (Other)
  Sender: FDA-Public Use
  Company Number: 2011BN000118

PATIENT

DRUGS (1)
  1. MELPHALAN HYDROCHLORIDE [Suspect]
     Indication: RETINOBLASTOMA
     Dosage: 5 MG; IART
     Route: 014

REACTIONS (2)
  - RETINAL VASCULAR DISORDER [None]
  - ANGIOGRAM PERIPHERAL ABNORMAL [None]
